FAERS Safety Report 5402924-5 (Version None)
Quarter: 2007Q3

REPORT INFORMATION
  Report Type: 
  Country: None (occurrence: None)
  Receive Date: 20070801
  Receipt Date: 20070718
  Transmission Date: 20080115
  Serious: No
  Sender: FDA-Public Use
  Company Number: US-JNJFOC-20070704448

PATIENT

DRUGS (1)
  1. INVEGA [Suspect]
     Indication: POST-TRAUMATIC STRESS DISORDER
     Route: 048

REACTIONS (2)
  - NIGHTMARE [None]
  - POOR QUALITY SLEEP [None]
